FAERS Safety Report 5959744-2 (Version None)
Quarter: 2008Q4

REPORT INFORMATION
  Report Type: 
  Country: None (occurrence: None)
  Receive Date: 20081119
  Receipt Date: 20081119
  Transmission Date: 20090506
  Serious: Yes (Life-Threatening, Hospitalization)
  Sender: FDA-Public Use
  Company Number: None

PATIENT
  Sex: Female

DRUGS (10)
  1. WARFARIN SODIUM [Suspect]
     Indication: ATRIAL FIBRILLATION
     Dosage: 2.5 MG PO DAILY
     Route: 048
     Dates: start: 20081024
  2. DIGOXIN [Concomitant]
  3. DILTIAZEM HCL [Concomitant]
  4. ASPART SS [Concomitant]
  5. LEVOFLOXACIN [Concomitant]
  6. LISINOPRIL [Concomitant]
  7. MAG OX [Concomitant]
  8. METOPROLOL TARTRATE [Concomitant]
  9. QUETIAPINE FUMARATE [Concomitant]
  10. TRAZODONE HCL [Concomitant]

REACTIONS (3)
  - HAEMOGLOBIN DECREASED [None]
  - INTERNATIONAL NORMALISED RATIO INCREASED [None]
  - UPPER GASTROINTESTINAL HAEMORRHAGE [None]
